FAERS Safety Report 5940491-8 (Version None)
Quarter: 2008Q4

REPORT INFORMATION
  Report Type: 
  Country: None (occurrence: None)
  Receive Date: 20081030
  Receipt Date: 20081015
  Transmission Date: 20090506
  Serious: Yes (Hospitalization)
  Sender: FDA-Public Use
  Company Number: 2008S1019169

PATIENT
  Age: 24 Year
  Sex: Female

DRUGS (1)
  1. CYSTAGON [Suspect]
     Indication: CYSTINOSIS
     Dosage: 43 MG/KG;DAILY; 48 MG/KG;DAILY; 51	MG/KG;DAILY;
     Dates: start: 19960101

REACTIONS (5)
  - ABDOMINAL PAIN UPPER [None]
  - DIALYSIS [None]
  - PAROSMIA [None]
  - RENAL FAILURE [None]
  - TRANSPLANT FAILURE [None]
